FAERS Safety Report 13529314 (Version 2)
Quarter: 2017Q2

REPORT INFORMATION
  Report Type: Spontaneous
  Country: US (occurrence: US)
  Receive Date: 20170509
  Receipt Date: 20170509
  Transmission Date: 20170830
  Serious: No
  Sender: FDA-Public Use
  Company Number: US-ROCHE-GNE294976

PATIENT
  Age: 47 Year
  Sex: Female
  Weight: 82.63 kg

DRUGS (2)
  1. XOLAIR [Suspect]
     Active Substance: OMALIZUMAB
     Indication: ASTHMA
     Dosage: 375 UNK, ^Q2^
     Route: 058
     Dates: start: 20091116
  2. XOLAIR [Suspect]
     Active Substance: OMALIZUMAB
     Dosage: 375 MG, Q2W
     Route: 030

REACTIONS (2)
  - Drug administration error [Recovered/Resolved with Sequelae]
  - Injection site reaction [None]

NARRATIVE: CASE EVENT DATE: 20091114
